FAERS Safety Report 17492480 (Version 3)
Quarter: 2020Q4

REPORT INFORMATION
  Report Type: Spontaneous
  Country: US (occurrence: US)
  Receive Date: 20200303
  Receipt Date: 20201214
  Transmission Date: 20210113
  Serious: No
  Sender: FDA-Public Use
  Company Number: US-NOVOPROD-701556

PATIENT
  Sex: Male

DRUGS (3)
  1. LEVEMIR [Suspect]
     Active Substance: INSULIN DETEMIR
     Indication: TYPE 2 DIABETES MELLITUS
     Dosage: 25 IU (DOSING BASED ON EATING HABITS AND BLOOD SUGARS)
     Route: 058
     Dates: start: 2016
  2. NOVOLOG [Suspect]
     Active Substance: INSULIN ASPART
     Indication: TYPE 2 DIABETES MELLITUS
     Dosage: 100 IU (DOSING BASED ON EATING HABITS AND BLOOD SUGARS)
     Route: 058
     Dates: start: 2011
  3. VICTOZA [Suspect]
     Active Substance: LIRAGLUTIDE
     Indication: TYPE 2 DIABETES MELLITUS
     Dosage: 1.8 MG (DOSING BASED ON EATING HABITS AND BLOOD SUGARS)
     Route: 058
     Dates: start: 2017

REACTIONS (3)
  - Weight increased [Not Recovered/Not Resolved]
  - Treatment noncompliance [Unknown]
  - Dyspepsia [Unknown]
